FAERS Safety Report 12761579 (Version 1)
Quarter: 2016Q3

REPORT INFORMATION
  Report Type: Report from Study
  Country: CA (occurrence: CA)
  Receive Date: 20160920
  Receipt Date: 20160920
  Transmission Date: 20161109
  Serious: Yes (Hospitalization, Other)
  Sender: FDA-Public Use
  Company Number: PHHY2013CA033284

PATIENT
  Sex: Female

DRUGS (3)
  1. GLEEVEC [Suspect]
     Active Substance: IMATINIB MESYLATE
     Indication: CHRONIC MYELOID LEUKAEMIA
     Dosage: 400 MG, QD
     Route: 048
     Dates: start: 200706
  2. GLEEVEC [Suspect]
     Active Substance: IMATINIB MESYLATE
     Dosage: 400 MG, QD
     Route: 048
  3. ESTROGEN [Concomitant]
     Active Substance: ESTRONE\SUS SCROFA OVARY
     Indication: PRODUCT USED FOR UNKNOWN INDICATION
     Dosage: UNK UKN, UNK
     Route: 065

REACTIONS (11)
  - Chronic myeloid leukaemia recurrent [Unknown]
  - Clostridium difficile infection [Unknown]
  - Lower respiratory tract infection [Unknown]
  - Feeling abnormal [Unknown]
  - Back pain [Unknown]
  - Blood potassium decreased [Unknown]
  - Hypophagia [Unknown]
  - Bone pain [Unknown]
  - Muscle spasms [Unknown]
  - Fluid intake reduced [Unknown]
  - Diarrhoea [Unknown]

NARRATIVE: CASE EVENT DATE: 2012
